FAERS Safety Report 6078518-8 (Version None)
Quarter: 2009Q1

REPORT INFORMATION
  Report Type: 
  Country: None (occurrence: None)
  Receive Date: 20090211
  Receipt Date: 20090211
  Transmission Date: 20090719
  Serious: Yes (Other)
  Sender: FDA-Public Use
  Company Number: None

PATIENT
  Age: 42 Year
  Sex: Female
  Weight: 83.9154 kg

DRUGS (1)
  1. ZOLOFT [Suspect]
     Indication: DEPRESSION
     Dosage: 25 MG THEN UP TO 100 MG 1X DAILY PO
     Route: 048
     Dates: start: 19990201, end: 20020301

REACTIONS (4)
  - AMNESIA [None]
  - DISTURBANCE IN ATTENTION [None]
  - STRESS [None]
  - THINKING ABNORMAL [None]
